FAERS Safety Report 23485945 (Version 1)
Quarter: 2024Q1

REPORT INFORMATION
  Report Type: Spontaneous
  Country: GB (occurrence: GB)
  Receive Date: 20240206
  Receipt Date: 20240206
  Transmission Date: 20240410
  Serious: No
  Sender: FDA-Public Use
  Company Number: None

PATIENT
  Age: 50 Year
  Sex: Female
  Weight: 83 kg

DRUGS (8)
  1. EZETIMIBE [Suspect]
     Active Substance: EZETIMIBE
     Indication: Ill-defined disorder
     Dosage: UNK
     Route: 065
     Dates: start: 20231211
  2. AUDAVATE [Concomitant]
     Indication: Ill-defined disorder
     Dosage: UNK QD (APPLY THIN LAYER TO AFFECTED PARTS ONCE DAILY)
     Route: 065
     Dates: start: 20231211
  3. EZETIMIBE [Concomitant]
     Active Substance: EZETIMIBE
     Indication: Ill-defined disorder
     Dosage: UNK, QD (TAKE ONE DAILY)
     Route: 065
     Dates: start: 20221019, end: 20231211
  4. FEXOFENADINE [Concomitant]
     Active Substance: FEXOFENADINE HYDROCHLORIDE
     Indication: Ill-defined disorder
     Dosage: UNK, TID (TAKE ONE UP TO 3 TIMES DAILY)
     Route: 065
     Dates: start: 20221019
  5. HYDROCORTISONE [Concomitant]
     Active Substance: HYDROCORTISONE
     Indication: Ill-defined disorder
     Dosage: UNK, BID (APPLY TWICE DAILY)
     Route: 065
     Dates: start: 20231211
  6. LOSARTAN [Concomitant]
     Active Substance: LOSARTAN
     Indication: Ill-defined disorder
     Dosage: UNK, QD (TAKE ONE DAILY)
     Route: 065
     Dates: start: 20221019
  7. MENTHOL [Concomitant]
     Active Substance: MENTHOL
     Indication: Ill-defined disorder
     Dosage: UNK (APPLY AS NEEDED)
     Route: 065
     Dates: start: 20231211
  8. MOMETASONE [Concomitant]
     Active Substance: MOMETASONE
     Indication: Ill-defined disorder
     Dosage: UNK (APPLY AS DIRECTED BY DERMATOLOGY)
     Route: 065
     Dates: start: 20221019

REACTIONS (1)
  - Urticaria [Recovered/Resolved]

NARRATIVE: CASE EVENT DATE: 20231211
